FAERS Safety Report 9829622 (Version 1)
Quarter: 2014Q1

REPORT INFORMATION
  Report Type: Spontaneous
  Country: US (occurrence: US)
  Receive Date: 20140120
  Receipt Date: 20140120
  Transmission Date: 20141002
  Serious: No
  Sender: FDA-Public Use
  Company Number: US-BIOGENIDEC-2014BI004363

PATIENT
  Sex: Female

DRUGS (7)
  1. TECFIDERA [Suspect]
     Indication: MULTIPLE SCLEROSIS
     Route: 048
     Dates: start: 201307
  2. CENTRUM SILVER [Concomitant]
  3. LORAZEPAM [Concomitant]
  4. ACETAMINOPHEN [Concomitant]
  5. IBUPROFEN [Concomitant]
  6. CITRACAL+D [Concomitant]
  7. VITAMIN D3 [Concomitant]

REACTIONS (1)
  - Irritability [Unknown]
